FAERS Safety Report 17950145 (Version 1)
Quarter: 2020Q2

REPORT INFORMATION
  Report Type: Spontaneous
  Country: IT (occurrence: IT)
  Receive Date: 20200626
  Receipt Date: 20200626
  Transmission Date: 20200714
  Serious: Yes (Death, Hospitalization)
  Sender: FDA-Public Use
  Company Number: NVSC2020IT179355

PATIENT
  Age: 57 Year
  Sex: Male

DRUGS (3)
  1. TOCILIZUMAB. [Suspect]
     Active Substance: TOCILIZUMAB
     Indication: ACUTE RESPIRATORY DISTRESS SYNDROME
     Dosage: 8 MG/KG
     Route: 042
  2. MYCOPHENOLATE MOFETIL. [Suspect]
     Active Substance: MYCOPHENOLATE MOFETIL
     Indication: PROPHYLAXIS AGAINST TRANSPLANT REJECTION
     Dosage: UNK
     Route: 065
  3. TOCILIZUMAB. [Suspect]
     Active Substance: TOCILIZUMAB
     Indication: COVID-19 PNEUMONIA

REACTIONS (6)
  - Bacterial sepsis [Fatal]
  - COVID-19 [Recovered/Resolved]
  - Off label use [Unknown]
  - COVID-19 pneumonia [Recovered/Resolved]
  - Intentional product use issue [Unknown]
  - Acute respiratory distress syndrome [Recovered/Resolved]
